FAERS Safety Report 8506966-2 (Version None)
Quarter: 2012Q3

REPORT INFORMATION
  Report Type: 
  Country: None (occurrence: None)
  Receive Date: 20120703
  Receipt Date: 20120627
  Transmission Date: 20120928
  Serious: Yes (Hospitalization, Other)
  Sender: FDA-Public Use
  Company Number: 2012SP036389

PATIENT
  Sex: Female

DRUGS (3)
  1. PEG-INTRON [Suspect]
     Indication: HEPATITIS C
     Dates: start: 20110921
  2. RIBAVIRIN [Suspect]
     Indication: HEPATITIS C
     Dates: start: 20110921
  3. VICTRELIS [Suspect]
     Indication: HEPATITIS C
     Dates: start: 20111103, end: 20120612

REACTIONS (3)
  - CEREBROVASCULAR ACCIDENT [None]
  - STRESS [None]
  - CHEST PAIN [None]
